FAERS Safety Report 4759509-3 (Version None)
Quarter: 2005Q3

REPORT INFORMATION
  Report Type: 
  Country: None (occurrence: None)
  Receive Date: 20050831
  Receipt Date: 20050823
  Transmission Date: 20060218
  Serious: Yes (Hospitalization, Other)
  Sender: FDA-Public Use
  Company Number: 163-20785-05080083

PATIENT
  Age: 70 Year
  Sex: Male
  Weight: 94.8018 kg

DRUGS (11)
  1. THALOMID [Suspect]
     Indication: MYELODYSPLASTIC SYNDROME
     Dosage: 50 MG, QHS,ORAL
     Route: 048
     Dates: start: 20050620
  2. VIDAZA [Suspect]
     Indication: MYELODYSPLASTIC SYNDROME
     Dosage: SEE IMAGE
     Route: 058
     Dates: start: 20050620, end: 20050624
  3. VIDAZA [Suspect]
     Indication: MYELODYSPLASTIC SYNDROME
     Dosage: SEE IMAGE
     Route: 058
     Dates: start: 20050815, end: 20050817
  4. ALLOPURINOL [Concomitant]
  5. LISINOPRIL [Concomitant]
  6. MINIPRESS [Concomitant]
  7. NORVASC [Concomitant]
  8. HYDROCHLOROTHIAZIDE [Concomitant]
  9. VIAGRA [Concomitant]
  10. B12 (CYANOCOBALAMIN) [Concomitant]
  11. NEUPOGEN [Concomitant]

REACTIONS (3)
  - HEPATIC MASS [None]
  - NIGHT SWEATS [None]
  - PYREXIA [None]
